FAERS Safety Report 23416116 (Version 1)
Quarter: 2024Q1

REPORT INFORMATION
  Report Type: Spontaneous
  Country: CN (occurrence: CN)
  Receive Date: 20240118
  Receipt Date: 20240118
  Transmission Date: 20240410
  Serious: Yes (Life-Threatening, Other)
  Sender: FDA-Public Use
  Company Number: CN-PFIZER INC-PV202400006540

PATIENT
  Age: 20 Day
  Sex: Female
  Weight: 3.65 kg

DRUGS (11)
  1. SIROLIMUS [Suspect]
     Active Substance: SIROLIMUS
     Indication: Tuberous sclerosis complex
     Dosage: 1 MG/(M2.D), 1X/DAY
     Route: 048
  2. SIROLIMUS [Suspect]
     Active Substance: SIROLIMUS
     Dosage: 1 MG/(M2.D), 1X/DAY (1%) ORAL SOLUTION
     Route: 048
  3. SIROLIMUS [Suspect]
     Active Substance: SIROLIMUS
     Dosage: 1 MG/(M2.D), 1X/DAY (1%) ORAL SOLUTION, AT 4 MONTHS
     Route: 048
  4. VIGABATRIN [Suspect]
     Active Substance: VIGABATRIN
     Indication: Tuberous sclerosis complex
     Dosage: 25 MG/KG/D, 2X/DAY (BID)
  5. VIGABATRIN [Suspect]
     Active Substance: VIGABATRIN
     Dosage: 50 MG/KG/D, 2X/DAY (BID)
  6. VIGABATRIN [Suspect]
     Active Substance: VIGABATRIN
     Dosage: 120 MG/KG/D, 2X/DAY
  7. VIGABATRIN [Suspect]
     Active Substance: VIGABATRIN
     Dosage: 55 MG/KG/D, 2X/DAY
  8. AMINOCAPROIC ACID [Suspect]
     Active Substance: AMINOCAPROIC ACID
     Indication: Seizure
     Dosage: UNK
  9. TOPIRAMATE [Suspect]
     Active Substance: TOPIRAMATE
     Indication: Epilepsy
     Dosage: UNK
  10. VALPROIC ACID [Suspect]
     Active Substance: VALPROIC ACID
     Indication: Epilepsy
     Dosage: UNK
  11. OXCARBAZEPINE [Suspect]
     Active Substance: OXCARBAZEPINE
     Indication: Epilepsy
     Dosage: UNK

REACTIONS (2)
  - Drug ineffective for unapproved indication [Unknown]
  - Off label use [Unknown]
